FAERS Safety Report 6721295-5 (Version None)
Quarter: 2010Q2

REPORT INFORMATION
  Report Type: 
  Country: None (occurrence: None)
  Receive Date: 20100512
  Receipt Date: 20100429
  Transmission Date: 20101027
  Serious: Yes (Hospitalization)
  Sender: FDA-Public Use
  Company Number: PHHY2010US27931

PATIENT
  Sex: Male
  Weight: 98 kg

DRUGS (8)
  1. EXJADE [Suspect]
     Indication: LYMPHATIC DISORDER
     Dosage: 500 MG, BID
     Route: 048
     Dates: start: 20100421
  2. EXJADE [Suspect]
     Indication: BLOOD DISORDER
  3. SIMVASTATIN [Concomitant]
  4. PLAVIX [Concomitant]
  5. FOLIC ACID [Concomitant]
  6. OMEPRAZOLE [Concomitant]
  7. CAPTOPRIL AND HYDROCHLOROTHIAZIDE [Concomitant]
  8. ZOMETA [Concomitant]

REACTIONS (2)
  - CELLULITIS [None]
  - VOMITING [None]
